FAERS Safety Report 6176901-3 (Version None)
Quarter: 2009Q2

REPORT INFORMATION
  Report Type: 
  Country: None (occurrence: None)
  Receive Date: 20090501
  Receipt Date: 20081209
  Transmission Date: 20091009
  Serious: Yes (Hospitalization)
  Sender: FDA-Public Use
  Company Number: US-ALEXION-A200800179

PATIENT
  Sex: Female

DRUGS (15)
  1. SOLIRIS [Suspect]
     Indication: PAROXYSMAL NOCTURNAL HAEMOGLOBINURIA
     Dosage: 600 MG, QW
     Route: 042
     Dates: start: 20080722, end: 20080812
  2. SOLIRIS [Suspect]
     Dosage: 900 MG, Q2W
     Route: 042
     Dates: start: 20080819, end: 20080930
  3. PREDNISONE [Suspect]
     Dosage: 80 MG, QD
     Route: 048
  4. THIAZIDES [Concomitant]
     Indication: BLOOD PRESSURE INCREASED
     Route: 048
     Dates: start: 20080721, end: 20080701
  5. LOVENOX [Concomitant]
  6. MAGNESIUM SULFATE [Concomitant]
  7. FOLIC ACID [Concomitant]
     Indication: PAROXYSMAL NOCTURNAL HAEMOGLOBINURIA
     Dosage: UNK, QD
     Route: 048
  8. XANTAC [Concomitant]
     Dosage: UNK, UNK
  9. NORVASC [Concomitant]
     Dosage: 5 UNK, QD
  10. FLEXERIL [Concomitant]
     Dosage: 10 UNK, QD
  11. LORTAB [Concomitant]
     Dosage: UNK, PRN
  12. ZOLOFT [Concomitant]
     Dosage: 50 UNK, QD
  13. TOPROL-XL [Concomitant]
     Dosage: 25 UNK, QD
  14. PRILOSEC [Concomitant]
     Dosage: 40 UNK, QD
  15. ARIXTRA [Concomitant]
     Dosage: 10 MG, QD
     Route: 058

REACTIONS (6)
  - CHEST DISCOMFORT [None]
  - DYSPNOEA [None]
  - MUSCLE SPASMS [None]
  - MUSCULOSKELETAL DISCOMFORT [None]
  - RASH [None]
  - WEIGHT INCREASED [None]
